FAERS Safety Report 22036218 (Version 1)
Quarter: 2023Q1

REPORT INFORMATION
  Report Type: Spontaneous
  Country: NL (occurrence: NL)
  Receive Date: 20230225
  Receipt Date: 20230225
  Transmission Date: 20230417
  Serious: Yes (Hospitalization)
  Sender: FDA-Public Use
  Company Number: NL-LRB-00866371

PATIENT
  Sex: Female
  Weight: 45 kg

DRUGS (2)
  1. HYDROCHLOROTHIAZIDE [Suspect]
     Active Substance: HYDROCHLOROTHIAZIDE
     Indication: Hypertension
     Dosage: 12.5 MILLIGRAM, ONCE A DAY
     Route: 065
     Dates: start: 20180514
  2. SODIUM CHLORIDE [Concomitant]
     Active Substance: SODIUM CHLORIDE
     Indication: Product used for unknown indication
     Dosage: 1000 MILLIGRAM, 3 TIMES A DAY
     Route: 065

REACTIONS (1)
  - Hyponatraemia [Recovering/Resolving]
